FAERS Safety Report 4936575-3 (Version None)
Quarter: 2006Q1

REPORT INFORMATION
  Report Type: 
  Country: None (occurrence: None)
  Receive Date: 20060307
  Receipt Date: 20051114
  Transmission Date: 20060701
  Serious: Yes (Hospitalization, Other)
  Sender: FDA-Public Use
  Company Number: US-MERCK-0511USA02787

PATIENT
  Sex: Female
  Weight: 59 kg

DRUGS (7)
  1. VIOXX [Suspect]
     Indication: ARTHRITIS
     Route: 048
     Dates: start: 20040303, end: 20040701
  2. VIOXX [Suspect]
     Route: 048
     Dates: start: 20010301
  3. SYNTHROID [Concomitant]
     Route: 065
  4. GLYBURIDE [Concomitant]
     Route: 065
  5. AVANDIA [Concomitant]
     Route: 065
  6. LIPITOR [Concomitant]
     Route: 065
  7. ASPIRIN [Concomitant]
     Route: 065

REACTIONS (16)
  - BLOOD CHOLESTEROL INCREASED [None]
  - BREAST CANCER [None]
  - CARDIAC FAILURE CONGESTIVE [None]
  - CARDIOVASCULAR DISORDER [None]
  - CEREBROVASCULAR ACCIDENT [None]
  - CORONARY ARTERY DISEASE [None]
  - DEEP VEIN THROMBOSIS [None]
  - INJURY [None]
  - MITRAL VALVE INCOMPETENCE [None]
  - MYOCARDIAL INFARCTION [None]
  - MYOCARDIAL ISCHAEMIA [None]
  - OEDEMA PERIPHERAL [None]
  - PULMONARY EMBOLISM [None]
  - RENAL FAILURE [None]
  - THROMBOSIS [None]
  - TRICUSPID VALVE INCOMPETENCE [None]
